FAERS Safety Report 8920618 (Version 1)
Quarter: 2012Q4

REPORT INFORMATION
  Report Type: 
  Country: JP (occurrence: JP)
  Receive Date: 20121122
  Receipt Date: 20121122
  Transmission Date: 20130627
  Serious: Yes (Other)
  Sender: FDA-Public Use
  Company Number: JP-009507513-1211JPN007884

PATIENT
  Age: 5 Year
  Sex: Male

DRUGS (2)
  1. FAMOTIDINE [Suspect]
     Indication: SANDIFER^S SYNDROME
     Route: 048
  2. RIKKUNSHI-TO [Concomitant]
     Indication: SANDIFER^S SYNDROME
     Route: 048

REACTIONS (2)
  - Sandifer^s syndrome [Recovered/Resolved]
  - Drug ineffective [Unknown]
